FAERS Safety Report 19594904 (Version 1)
Quarter: 2021Q3

REPORT INFORMATION
  Report Type: Spontaneous
  Country: DE (occurrence: CN)
  Receive Date: 20210722
  Receipt Date: 20210722
  Transmission Date: 20211014
  Serious: Yes (Hospitalization)
  Sender: FDA-Public Use
  Company Number: CN-ELI_LILLY_AND_COMPANY-CN202107008205

PATIENT
  Age: 75 Year
  Sex: Male
  Weight: 50 kg

DRUGS (4)
  1. CAPECITABINE. [Suspect]
     Active Substance: CAPECITABINE
     Indication: COLON CANCER RECURRENT
     Dosage: 1.5 G, BID
     Route: 048
     Dates: start: 20210420, end: 20210614
  2. ERBITUX [Suspect]
     Active Substance: CETUXIMAB
     Indication: COLON CANCER RECURRENT
     Dosage: 640 MG, UNKNOWN
     Route: 041
     Dates: start: 20210419
  3. ERBITUX [Suspect]
     Active Substance: CETUXIMAB
     Dosage: 400 MG, UNKNOWN
     Route: 041
     Dates: start: 20210510, end: 20210531
  4. SODIUM CHLORIDE. [Concomitant]
     Active Substance: SODIUM CHLORIDE
     Indication: PRODUCT USED FOR UNKNOWN INDICATION
     Dosage: 250 ML, DAILY
     Route: 041
     Dates: start: 20210531, end: 20210531

REACTIONS (1)
  - Palmar-plantar erythrodysaesthesia syndrome [Recovering/Resolving]

NARRATIVE: CASE EVENT DATE: 20210629
